FAERS Safety Report 4580157-2 (Version None)
Quarter: 2005Q1

REPORT INFORMATION
  Report Type: 
  Country: None (occurrence: None)
  Receive Date: 20050127
  Receipt Date: 20040928
  Transmission Date: 20050727
  Serious: No
  Sender: FDA-Public Use
  Company Number: USA040979561

PATIENT
  Age: 15 Year
  Sex: Male

DRUGS (1)
  1. STRATTERA [Suspect]
     Dosage: 40 MG DAY

REACTIONS (3)
  - COLD SWEAT [None]
  - NAUSEA [None]
  - VOMITING [None]
